FAERS Safety Report 6744044-3 (Version None)
Quarter: 2010Q2

REPORT INFORMATION
  Report Type: 
  Country: None (occurrence: None)
  Receive Date: 20100527
  Receipt Date: 20100521
  Transmission Date: 20101027
  Serious: Yes (Hospitalization)
  Sender: FDA-Public Use
  Company Number: A0791330A

PATIENT
  Age: 49 Year
  Sex: Male
  Weight: 136.4 kg

DRUGS (6)
  1. AVANDIA [Suspect]
     Indication: DIABETES MELLITUS
     Dosage: 4MG TWICE PER DAY
     Route: 048
     Dates: start: 20000101, end: 20030101
  2. AMARYL [Concomitant]
     Dates: start: 20010312
  3. SEREVENT [Concomitant]
  4. AZMACORT [Concomitant]
  5. LASIX [Concomitant]
  6. KDUR [Concomitant]

REACTIONS (2)
  - CARDIAC FAILURE CONGESTIVE [None]
  - CEREBROVASCULAR ACCIDENT [None]
